FAERS Safety Report 6697798-9 (Version None)
Quarter: 2010Q2

REPORT INFORMATION
  Report Type: 
  Country: None (occurrence: None)
  Receive Date: 20100423
  Receipt Date: 20100413
  Transmission Date: 20101027
  Serious: Yes (Life-Threatening, Hospitalization)
  Sender: FDA-Public Use
  Company Number: 2010AL002256

PATIENT
  Age: 51 Year
  Sex: Female

DRUGS (2)
  1. FEVERALL [Suspect]
  2. ZAPOMEX [Concomitant]

REACTIONS (3)
  - BLOOD POTASSIUM DECREASED [None]
  - LIVER DISORDER [None]
  - OVERDOSE [None]
